FAERS Safety Report 16971502 (Version 1)
Quarter: 2019Q4

REPORT INFORMATION
  Report Type: Report from Study
  Country: US (occurrence: US)
  Receive Date: 20191029
  Receipt Date: 20191029
  Transmission Date: 20200122
  Serious: Yes (Other)
  Sender: FDA-Public Use
  Company Number: US-JNJFOC-20191030838

PATIENT
  Age: 85 Year
  Sex: Female

DRUGS (20)
  1. LASIX [Concomitant]
     Active Substance: FUROSEMIDE
  2. PANTOPRAZOLE [Concomitant]
     Active Substance: PANTOPRAZOLE
  3. ASPRIN [Concomitant]
     Active Substance: ASPIRIN
  4. FOLIC ACID. [Concomitant]
     Active Substance: FOLIC ACID
  5. VITAMIN B12 [Concomitant]
     Active Substance: CYANOCOBALAMIN
  6. FLUTICASONE. [Concomitant]
     Active Substance: FLUTICASONE
  7. GLUCOSAMINE [Concomitant]
     Active Substance: GLUCOSAMINE
  8. BENZONATATE. [Concomitant]
     Active Substance: BENZONATATE
  9. ELIQUIS [Concomitant]
     Active Substance: APIXABAN
  10. VITAMIN B6 [Concomitant]
     Active Substance: PYRIDOXINE HYDROCHLORIDE
  11. AMLODIPINE [Concomitant]
     Active Substance: AMLODIPINE BESYLATE
  12. IMBRUVICA [Suspect]
     Active Substance: IBRUTINIB
     Indication: LYMPHOCYTIC LEUKAEMIA
     Dosage: 420 MG, QD
     Route: 048
     Dates: start: 20190104, end: 20190502
  13. TESSALON [Concomitant]
     Active Substance: BENZONATATE
  14. IMBRUVICA [Suspect]
     Active Substance: IBRUTINIB
     Dosage: 280 MG, QD
     Route: 048
     Dates: start: 20190503
  15. LORAZEPAM. [Concomitant]
     Active Substance: LORAZEPAM
  16. FUROSEMIDE. [Concomitant]
     Active Substance: FUROSEMIDE
  17. LORATADINE. [Concomitant]
     Active Substance: LORATADINE
  18. VITAMIN D                          /00107901/ [Concomitant]
     Active Substance: ERGOCALCIFEROL
  19. CARVEDILOL. [Concomitant]
     Active Substance: CARVEDILOL
  20. LOSARTAN. [Concomitant]
     Active Substance: LOSARTAN

REACTIONS (5)
  - Pain in extremity [Unknown]
  - Rib fracture [Unknown]
  - Rotator cuff syndrome [Unknown]
  - Muscular weakness [Unknown]
  - Fall [Unknown]

NARRATIVE: CASE EVENT DATE: 201909
